FAERS Safety Report 4796284-0 (Version None)
Quarter: 2005Q4

REPORT INFORMATION
  Report Type: 
  Country: None (occurrence: None)
  Receive Date: 20051005
  Receipt Date: 20051005
  Transmission Date: 20060501
  Serious: No
  Sender: FDA-Public Use
  Company Number: None

PATIENT
  Sex: Female
  Weight: 76.2043 kg

DRUGS (2)
  1. DESMOPRESSIN ACETATE [Suspect]
     Indication: DIABETES MELLITUS
     Dosage: 1 BY MOUTH BID
     Dates: start: 20050828, end: 20050928
  2. DESMOPRESSIN ACETATE [Suspect]
     Indication: URINARY INCONTINENCE
     Dosage: 1 BY MOUTH BID
     Dates: start: 20050828, end: 20050928

REACTIONS (1)
  - DRUG INEFFECTIVE [None]
